FAERS Safety Report 9442878 (Version 1)
Quarter: 2013Q3

REPORT INFORMATION
  Report Type: Spontaneous
  Country: US (occurrence: None)
  Receive Date: 20130805
  Receipt Date: 20130805
  Transmission Date: 20140515
  Serious: Yes (Other)
  Sender: FDA-Public Use
  Company Number: None

PATIENT
  Age: 65 Year
  Sex: Male
  Weight: 106.6 kg

DRUGS (1)
  1. CEFDINIR [Suspect]
     Indication: SINUSITIS
     Dosage: 2 DAILY
     Dates: start: 20130521, end: 20130606

REACTIONS (1)
  - Urticaria [None]
